FAERS Safety Report 5372348-8 (Version None)
Quarter: 2007Q2

REPORT INFORMATION
  Report Type: 
  Country: None (occurrence: None)
  Receive Date: 20070627
  Receipt Date: 20070626
  Transmission Date: 20071010
  Serious: Yes (Hospitalization)
  Sender: FDA-Public Use
  Company Number: ES-BRISTOL-MYERS SQUIBB COMPANY-13798798

PATIENT
  Age: 55 Year
  Sex: Male

DRUGS (18)
  1. CISPLATIN [Suspect]
     Indication: NON-SMALL CELL LUNG CANCER
     Route: 042
     Dates: start: 20070510, end: 20070510
  2. GEMCITABINE HCL [Suspect]
     Indication: NON-SMALL CELL LUNG CANCER
     Route: 042
     Dates: start: 20070510, end: 20070510
  3. SU-011,248 [Suspect]
     Indication: NON-SMALL CELL LUNG CANCER
     Route: 048
     Dates: start: 20070512, end: 20070516
  4. RADIATION THERAPY [Suspect]
     Indication: BONE DISORDER
     Dates: start: 20070430
  5. DURAGESIC-100 [Concomitant]
     Route: 062
  6. METAMIZOLE [Concomitant]
     Route: 048
  7. OMEPRAZOLE [Concomitant]
     Route: 048
  8. FORTECORTIN [Concomitant]
     Route: 048
  9. DUPHALAC [Concomitant]
     Route: 048
  10. DICLOFENAC [Concomitant]
     Route: 048
  11. ACTIQ [Concomitant]
     Route: 048
  12. GABAPENTIN [Concomitant]
     Route: 048
  13. SERETIDE [Concomitant]
     Route: 048
  14. PULMICORT [Concomitant]
     Route: 055
  15. ATROVENT [Concomitant]
     Route: 055
  16. MAGNESIUM SULFATE [Concomitant]
     Route: 048
  17. YATROX [Concomitant]
     Route: 048
  18. ORAMORPH SR [Concomitant]
     Route: 048

REACTIONS (3)
  - DIARRHOEA [None]
  - INTESTINAL OBSTRUCTION [None]
  - NEUTROPENIA [None]
